FAERS Safety Report 8516096-1 (Version None)
Quarter: 2012Q3

REPORT INFORMATION
  Report Type: 
  Country: None (occurrence: None)
  Receive Date: 20120717
  Receipt Date: 20120522
  Transmission Date: 20120928
  Serious: No
  Sender: FDA-Public Use
  Company Number: US-NOVEN-12US004690

PATIENT
  Sex: Male

DRUGS (1)
  1. FENTANYL [Suspect]
     Indication: PAIN
     Dosage: 50 UG/HR, Q 3DAYS
     Route: 062

REACTIONS (3)
  - AGITATION [None]
  - INADEQUATE ANALGESIA [None]
  - WEIGHT DECREASED [None]
